FAERS Safety Report 10193272 (Version 1)
Quarter: 2014Q2

REPORT INFORMATION
  Report Type: Spontaneous
  Country: US (occurrence: US)
  Receive Date: 20140524
  Receipt Date: 20140524
  Transmission Date: 20141212
  Serious: No
  Sender: FDA-Public Use
  Company Number: US-SA-2013SA120947

PATIENT
  Age: 60 Year
  Sex: Female

DRUGS (4)
  1. SOLOSTAR [Suspect]
     Dosage: FROM : 2-3 WEEKS AGO
  2. LANTUS SOLOSTAR [Suspect]
     Dosage: FROM : 2-3 WEEKS AGO?DOSE: 10-30 UNITS
     Route: 051
  3. AMARYL [Suspect]
     Indication: TYPE 2 DIABETES MELLITUS
     Dosage: TAKEN FROM: 15 -20 YEARS AGO
     Route: 048
  4. JANUVIA [Suspect]
     Route: 065

REACTIONS (2)
  - Visual acuity reduced [Unknown]
  - Blood glucose increased [Unknown]
